FAERS Safety Report 11524086 (Version 1)
Quarter: 2015Q3

REPORT INFORMATION
  Report Type: Spontaneous
  Country: US (occurrence: US)
  Receive Date: 20150903
  Receipt Date: 20150903
  Transmission Date: 20151125
  Serious: Yes (Other)
  Sender: FDA-Public Use
  Company Number: US-ELI_LILLY_AND_COMPANY-US201305000591

PATIENT
  Age: 67 Year
  Sex: Male

DRUGS (4)
  1. CYMBALTA [Suspect]
     Active Substance: DULOXETINE HYDROCHLORIDE
     Indication: BACK PAIN
     Dosage: 30 MG, QD
  2. NEUPRO [Concomitant]
     Active Substance: ROTIGOTINE
     Dosage: 4 MG, UNK
  3. NEUPRO [Concomitant]
     Active Substance: ROTIGOTINE
     Dosage: 6 MG, UNK
  4. NEUPRO [Concomitant]
     Active Substance: ROTIGOTINE
     Indication: PARKINSON^S DISEASE
     Dosage: 2 MG, UNK
     Route: 062

REACTIONS (1)
  - Blood pressure diastolic increased [Not Recovered/Not Resolved]
